FAERS Safety Report 17696676 (Version 3)
Quarter: 2021Q1

REPORT INFORMATION
  Report Type: Spontaneous
  Country: CA (occurrence: CA)
  Receive Date: 20200423
  Receipt Date: 20210217
  Transmission Date: 20210419
  Serious: Yes (Hospitalization, Other)
  Sender: FDA-Public Use
  Company Number: CA-AUROBINDO-AUR-APL-2019-055704

PATIENT
  Age: 55 Year
  Sex: Female

DRUGS (6)
  1. TOPIRAMATE. [Suspect]
     Active Substance: TOPIRAMATE
     Indication: MIGRAINE
     Dosage: UNK
     Route: 065
  2. TOPIRAMATE. [Suspect]
     Active Substance: TOPIRAMATE
     Dosage: 50 MILLIGRAM
     Route: 065
  3. SUMATRIPTAN. [Concomitant]
     Active Substance: SUMATRIPTAN
     Indication: MIGRAINE
     Dosage: 6 MILLIGRAM
     Route: 058
  4. ELAVIL [Suspect]
     Active Substance: AMITRIPTYLINE HYDROCHLORIDE
     Indication: PRODUCT USED FOR UNKNOWN INDICATION
     Dosage: 100 MILLIGRAM
     Route: 048
  5. PROPRANOLOL [Suspect]
     Active Substance: PROPRANOLOL HYDROCHLORIDE
     Indication: MIGRAINE
     Dosage: UNK
     Route: 065
  6. CANDESARTAN TABLETS [Suspect]
     Active Substance: CANDESARTAN
     Indication: MIGRAINE
     Dosage: 8 MILLIGRAM, ONCE A DAY
     Route: 048

REACTIONS (14)
  - Dry mouth [Unknown]
  - Headache [Unknown]
  - Migraine with aura [Unknown]
  - Product use in unapproved indication [Unknown]
  - Neurological symptom [Unknown]
  - Perfume sensitivity [Unknown]
  - Poor quality sleep [Unknown]
  - Flushing [Unknown]
  - Hypoaesthesia [Unknown]
  - Drug intolerance [Unknown]
  - Dermatitis contact [Unknown]
  - Dizziness [Unknown]
  - Paraesthesia oral [Unknown]
  - Drug ineffective [Unknown]
